FAERS Safety Report 8814932 (Version 3)
Quarter: 2012Q4

REPORT INFORMATION
  Report Type: 
  Country: AU (occurrence: AU)
  Receive Date: 20120928
  Receipt Date: 20121019
  Transmission Date: 20130627
  Serious: Yes (Death)
  Sender: FDA-Public Use
  Company Number: AU-B.I. PHARMACEUTICALS,INC./RIDGEFIELD-2012-AU-01685AU

PATIENT
  Sex: Male

DRUGS (7)
  1. PRADAXA [Suspect]
     Indication: CEREBROVASCULAR ACCIDENT PROPHYLAXIS
     Dosage: 300 mg
     Dates: start: 20111028
  2. PRADAXA [Suspect]
     Indication: ATRIAL FIBRILLATION
  3. TRITACE [Concomitant]
     Dosage: 2.5 mg
  4. TOPROL-XL [Concomitant]
     Dosage: 190 mg
  5. LIPITOR [Concomitant]
     Dosage: 20 mg
  6. METFORMIN [Concomitant]
     Dosage: 1 g
  7. GABAPENTIN [Concomitant]
     Dosage: 100 mg

REACTIONS (1)
  - Cardiac failure congestive [Fatal]
